FAERS Safety Report 20551380 (Version 1)
Quarter: 2022Q1

REPORT INFORMATION
  Report Type: Spontaneous
  Country: FR (occurrence: FR)
  Receive Date: 20220304
  Receipt Date: 20220304
  Transmission Date: 20220423
  Serious: Yes (Life-Threatening)
  Sender: FDA-Public Use
  Company Number: None

PATIENT
  Age: 22 Year
  Sex: Female
  Weight: 67 kg

DRUGS (12)
  1. VINCRISTINE [Suspect]
     Active Substance: VINCRISTINE
     Indication: Ewing^s sarcoma
     Dosage: 2MG/M2
     Route: 041
     Dates: start: 20200429, end: 20210108
  2. DOXORUBICIN [Suspect]
     Active Substance: DOXORUBICIN
     Indication: Ewing^s sarcoma
     Dosage: DOXORUBICINE TEVA 50 MG/25 ML, SOLUTION FOR INJECTION,UNIT DOSE:37.5MG/M2
     Route: 041
     Dates: start: 20200429, end: 20200807
  3. ETOPOSIDE [Suspect]
     Active Substance: ETOPOSIDE
     Indication: Ewing^s sarcoma
     Dosage: ETOPOSIDE MYLAN 20 MG/ML CONCENTRATE FOR SOLUTION FOR INFUSION,UNIT DOSE:100MG/M2
     Route: 041
     Dates: start: 20200515, end: 20210121
  4. CYCLOPHOSPHAMIDE [Suspect]
     Active Substance: CYCLOPHOSPHAMIDE
     Indication: Ewing^s sarcoma
     Dosage: ENDOXAN 1000 MG, POWDER FOR SOLUTION FOR INJECTION
     Route: 041
     Dates: start: 20200429, end: 20210108
  5. IFOSFAMIDE [Suspect]
     Active Substance: IFOSFAMIDE
     Indication: Ewing^s sarcoma
     Dosage: HOLOXAN 2000 MG, POWDER FOR PARENTERAL USE,UNIT DOSE:1800 MG/M2
     Route: 041
     Dates: start: 20200515, end: 20210121
  6. ONDANSETRON [Concomitant]
     Active Substance: ONDANSETRON
  7. MESNA [Concomitant]
     Active Substance: MESNA
     Dosage: MESNA EG
  8. ARIXTRA [Concomitant]
     Active Substance: FONDAPARINUX SODIUM
     Dosage: ARIXTRA 2.5 MG/0.5 ML, SOLUTION FOR INJECTION IN PRE-FILLED SYRINGE
  9. VALACYCLOVIR HYDROCHLORIDE [Concomitant]
     Active Substance: VALACYCLOVIR HYDROCHLORIDE
  10. PRIMPERAN [Concomitant]
     Active Substance: METOCLOPRAMIDE HYDROCHLORIDE
  11. FILGRASTIM [Concomitant]
     Active Substance: FILGRASTIM
  12. EMEND [Concomitant]
     Active Substance: APREPITANT

REACTIONS (1)
  - Acute lymphocytic leukaemia [Not Recovered/Not Resolved]

NARRATIVE: CASE EVENT DATE: 20220128
